FAERS Safety Report 6533061-4 (Version None)
Quarter: 2010Q1

REPORT INFORMATION
  Report Type: 
  Country: None (occurrence: None)
  Receive Date: 20100111
  Receipt Date: 20100104
  Transmission Date: 20100710
  Serious: Yes (Hospitalization)
  Sender: FDA-Public Use
  Company Number: JP-PFIZER INC-2009311937

PATIENT
  Sex: Female
  Weight: 45 kg

DRUGS (4)
  1. ZITHROMAC SR [Suspect]
     Indication: UPPER RESPIRATORY TRACT INFLAMMATION
     Dosage: 2 G, 1X/DAY
     Route: 048
     Dates: start: 20091210, end: 20091210
  2. MEFENAMIC ACID [Suspect]
     Indication: UPPER RESPIRATORY TRACT INFLAMMATION
     Dosage: 250 MG, 3X/DAY
     Route: 048
     Dates: start: 20091210, end: 20091211
  3. MEDICON [Suspect]
     Indication: UPPER RESPIRATORY TRACT INFLAMMATION
     Dosage: 15 MG, 3X/DAY
     Route: 048
     Dates: start: 20091210, end: 20091211
  4. MUCODYNE [Suspect]
     Indication: UPPER RESPIRATORY TRACT INFLAMMATION
     Dosage: 250 MG, 3X/DAY
     Route: 048
     Dates: start: 20091210, end: 20091211

REACTIONS (3)
  - GASTROENTERITIS [None]
  - GASTROINTESTINAL INFLAMMATION [None]
  - RENAL FAILURE ACUTE [None]
